FAERS Safety Report 8521286-8 (Version None)
Quarter: 2012Q3

REPORT INFORMATION
  Report Type: 
  Country: None (occurrence: None)
  Receive Date: 20120719
  Receipt Date: 20111112
  Transmission Date: 20120928
  Serious: Yes (Death)
  Sender: FDA-Public Use
  Company Number: US-ROCHE-1088040

PATIENT
  Sex: Female

DRUGS (2)
  1. LUCENTIS [Suspect]
     Indication: DIABETIC RETINOPATHY
     Route: 065
     Dates: start: 20110124, end: 20110328
  2. LUCENTIS [Suspect]
     Indication: MACULAR DEGENERATION

REACTIONS (1)
  - DEATH [None]
